FAERS Safety Report 7540423-5 (Version None)
Quarter: 2011Q2

REPORT INFORMATION
  Report Type: 
  Country: None (occurrence: None)
  Receive Date: 20110610
  Receipt Date: 20110608
  Transmission Date: 20111010
  Serious: Yes (Other)
  Sender: FDA-Public Use
  Company Number: A0930747A

PATIENT
  Age: 72 Year
  Sex: Female

DRUGS (2)
  1. COUMADIN [Concomitant]
  2. NICORETTE [Suspect]
     Indication: SMOKING CESSATION THERAPY
     Route: 002
     Dates: start: 20110511

REACTIONS (1)
  - COAGULOPATHY [None]
